FAERS Safety Report 6433574-X (Version None)
Quarter: 2009Q4

REPORT INFORMATION
  Report Type: 
  Country: None (occurrence: None)
  Receive Date: 20091106
  Receipt Date: 20091106
  Transmission Date: 20100525
  Serious: Yes (Life-Threatening, Other)
  Sender: FDA-Public Use
  Company Number: None

PATIENT
  Sex: Male
  Weight: 261 kg

DRUGS (2)
  1. PHENYTOIN [Suspect]
     Indication: EPILEPSY
     Dosage: 3 IN MORNING
     Dates: start: 19680101
  2. DILANTIN [Suspect]
     Dosage: 3 IN BEDTIME

REACTIONS (2)
  - DRUG TOXICITY [None]
  - MULTI-ORGAN DISORDER [None]
